FAERS Safety Report 8943436 (Version 1)
Quarter: 2012Q4

REPORT INFORMATION
  Report Type: 
  Country: FR (occurrence: FR)
  Receive Date: 20121204
  Receipt Date: 20121204
  Transmission Date: 20130627
  Serious: Yes (Life-Threatening, Hospitalization)
  Sender: FDA-Public Use
  Company Number: PHHY2012FR110923

PATIENT
  Age: 43 Year
  Sex: Male

DRUGS (4)
  1. IRBESARTAN SANDOZ [Suspect]
     Dosage: 150 mg, QD
     Route: 048
     Dates: start: 201209, end: 20121015
  2. TEMERIT DUO [Suspect]
     Dosage: 1 DF, QD
     Route: 048
     Dates: start: 201204, end: 20121015
  3. PIASCLEDINE [Concomitant]
     Dosage: 300 mg
     Dates: start: 201209
  4. TEMERIT [Concomitant]
     Dates: start: 201204

REACTIONS (10)
  - Pancreatitis acute [Recovering/Resolving]
  - Abdominal pain upper [Recovering/Resolving]
  - Hypotension [Recovering/Resolving]
  - Pancreatic haemorrhage [Recovering/Resolving]
  - Pyrexia [Recovering/Resolving]
  - Angiomyolipoma [Recovering/Resolving]
  - Renal necrosis [Recovering/Resolving]
  - Renal haemorrhage [Recovering/Resolving]
  - Renal failure [Recovering/Resolving]
  - Diarrhoea [Recovering/Resolving]
